FAERS Safety Report 18836543 (Version 3)
Quarter: 2021Q1

REPORT INFORMATION
  Report Type: Spontaneous
  Country: CA (occurrence: CA)
  Receive Date: 20210203
  Receipt Date: 20210212
  Transmission Date: 20210419
  Serious: Yes (Death, Life-Threatening)
  Sender: FDA-Public Use
  Company Number: CA-PFIZER INC-2021090369

PATIENT
  Age: 74 Year
  Sex: Male

DRUGS (1)
  1. DAURISMO [Suspect]
     Active Substance: GLASDEGIB
     Dosage: 100 MG, DAILY
     Route: 048
     Dates: start: 20201106, end: 2021

REACTIONS (3)
  - Death [Fatal]
  - Terminal state [Unknown]
  - Malaise [Unknown]
